FAERS Safety Report 18778638 (Version 1)
Quarter: 2021Q1

REPORT INFORMATION
  Report Type: Report from Study
  Country: US (occurrence: US)
  Receive Date: 20210124
  Receipt Date: 20210124
  Transmission Date: 20210419
  Serious: Yes (Hospitalization, Other)
  Sender: FDA-Public Use
  Company Number: US-TEVA-2021-US-1870253

PATIENT
  Age: 62 Year
  Sex: Female

DRUGS (2)
  1. COPAXONE [Suspect]
     Active Substance: GLATIRAMER ACETATE
     Route: 065
     Dates: start: 20170706
  2. PENICILLIN [Suspect]
     Active Substance: PENICILLIN
     Route: 065

REACTIONS (12)
  - Kidney infection [Recovering/Resolving]
  - Anaphylactic reaction [Unknown]
  - Haemoglobin decreased [Unknown]
  - Hypoaesthesia [Unknown]
  - Thinking abnormal [Unknown]
  - Hospitalisation [Unknown]
  - Memory impairment [Unknown]
  - Learning disorder [Unknown]
  - Nephrolithiasis [Recovering/Resolving]
  - Cystitis [Unknown]
  - Drug hypersensitivity [Unknown]
  - Delusion [Unknown]

NARRATIVE: CASE EVENT DATE: 2019
